FAERS Safety Report 25715173 (Version 1)
Quarter: 2025Q3

REPORT INFORMATION
  Report Type: Spontaneous
  Country: IN (occurrence: IN)
  Receive Date: 20250822
  Receipt Date: 20250822
  Transmission Date: 20251021
  Serious: Yes (Disabling)
  Sender: CIPLA
  Company Number: IN-MLMSERVICE-20250804-PI602338-00296-1

PATIENT

DRUGS (1)
  1. SILDENAFIL [Suspect]
     Active Substance: SILDENAFIL
     Route: 048

REACTIONS (5)
  - Maculopathy [Not Recovered/Not Resolved]
  - Intentional overdose [Unknown]
  - Counterfeit product administered [Unknown]
  - Prescription drug used without a prescription [Unknown]
  - Visual field defect [Not Recovered/Not Resolved]
